FAERS Safety Report 7085349-9 (Version None)
Quarter: 2010Q4

REPORT INFORMATION
  Report Type: 
  Country: None (occurrence: None)
  Receive Date: 20101105
  Receipt Date: 20101027
  Transmission Date: 20110411
  Serious: Yes (Other)
  Sender: FDA-Public Use
  Company Number: US-PFIZER INC-2010137507

PATIENT
  Sex: Male

DRUGS (5)
  1. LIPITOR [Suspect]
  2. LISINOPRIL [Suspect]
  3. VIAGRA [Suspect]
     Indication: ERECTILE DYSFUNCTION
  4. PLAVIX [Suspect]
  5. CIALIS [Suspect]

REACTIONS (4)
  - DIABETES MELLITUS [None]
  - HYPERTENSION [None]
  - SLEEP APNOEA SYNDROME [None]
  - STENT PLACEMENT [None]
